FAERS Safety Report 24939844 (Version 1)
Quarter: 2025Q1

REPORT INFORMATION
  Report Type: Spontaneous
  Country: US (occurrence: US)
  Receive Date: 20250207
  Receipt Date: 20250207
  Transmission Date: 20250409
  Serious: No
  Sender: ELI LILLY AND COMPANY
  Company Number: US-ELI_LILLY_AND_COMPANY-US202502003567

PATIENT
  Age: 57 Year
  Sex: Female

DRUGS (2)
  1. ZEPBOUND [Suspect]
     Active Substance: TIRZEPATIDE
     Indication: Product used for unknown indication
     Route: 065
     Dates: start: 202405, end: 202412
  2. ZEPBOUND [Suspect]
     Active Substance: TIRZEPATIDE
     Route: 065
     Dates: start: 202501, end: 20250131

REACTIONS (5)
  - Neuralgia [Unknown]
  - Paraesthesia [Unknown]
  - Pain [Unknown]
  - Groin pain [Unknown]
  - Anal hypoaesthesia [Unknown]
